FAERS Safety Report 4719426-1 (Version None)
Quarter: 2005Q3

REPORT INFORMATION
  Report Type: 
  Country: None (occurrence: None)
  Receive Date: 20050719
  Receipt Date: 20050711
  Transmission Date: 20060218
  Serious: Yes (Hospitalization)
  Sender: FDA-Public Use
  Company Number: ENTC2005-0198

PATIENT
  Age: 75 Year
  Sex: Female

DRUGS (6)
  1. STALEVO 100 [Suspect]
     Indication: PARKINSON'S DISEASE
     Dosage: 1 DF TID
     Route: 048
     Dates: end: 20050429
  2. EXELON [Concomitant]
  3. CETORNAN [Concomitant]
  4. DOLIPRANE [Concomitant]
  5. COLCHICINE ^HOUDE^ [Concomitant]
  6. FORLAX [Concomitant]

REACTIONS (3)
  - CHILLS [None]
  - HYPERHIDROSIS [None]
  - PYREXIA [None]
